FAERS Safety Report 11842092 (Version 1)
Quarter: 2015Q4

REPORT INFORMATION
  Report Type: Spontaneous
  Country: GB (occurrence: GB)
  Receive Date: 20151216
  Receipt Date: 20151216
  Transmission Date: 20160305
  Serious: Yes (Hospitalization, Other)
  Sender: FDA-Public Use
  Company Number: GB-TEVA-617041ACC

PATIENT
  Age: 73 Year
  Sex: Female

DRUGS (1)
  1. CO-AMOXICLAV [Suspect]
     Active Substance: AMOXICILLIN\CLAVULANIC ACID
     Indication: OPEN FRACTURE
     Dosage: 3.6 GRAM DAILY;
     Route: 042
     Dates: start: 20151116, end: 20151118

REACTIONS (7)
  - Pyrexia [Unknown]
  - Erythema [Recovered/Resolved]
  - Pruritus [Recovered/Resolved]
  - Acute kidney injury [Unknown]
  - Dermatitis allergic [Recovered/Resolved]
  - Hyponatraemia [Recovered/Resolved]
  - Malaise [Unknown]

NARRATIVE: CASE EVENT DATE: 20151116
